FAERS Safety Report 6156821-0 (Version None)
Quarter: 2009Q2

REPORT INFORMATION
  Report Type: 
  Country: None (occurrence: None)
  Receive Date: 20090416
  Receipt Date: 20090409
  Transmission Date: 20091009
  Serious: No
  Sender: FDA-Public Use
  Company Number: DE-ASTRAZENECA-2009PK01050

PATIENT
  Age: 72 Year
  Sex: Male

DRUGS (2)
  1. SEROQUEL [Suspect]
     Route: 048
     Dates: start: 20081101
  2. MIRTAZAPINE [Concomitant]

REACTIONS (1)
  - THROMBOCYTOPENIA [None]
